FAERS Safety Report 4305554-1 (Version None)
Quarter: 2004Q1

REPORT INFORMATION
  Report Type: 
  Country: None (occurrence: None)
  Receive Date: 20040226
  Receipt Date: 20031124
  Transmission Date: 20041129
  Serious: Yes (Other)
  Sender: FDA-Public Use
  Company Number: US-BRISTOL-MYERS SQUIBB COMPANY-12442984

PATIENT
  Age: 72 Year
  Sex: Female

DRUGS (3)
  1. ABILIFY [Suspect]
     Indication: HALLUCINATION
     Dosage: INITIATED AT 5 MG (2 MONTHS AGO), INCREASED TO 10 MG/DAY A FEW DAYS AGO.
     Route: 048
  2. ATENOLOL [Concomitant]
  3. REMINYL [Concomitant]

REACTIONS (1)
  - MYOCLONUS [None]
